FAERS Safety Report 7859190-0 (Version None)
Quarter: 2011Q4

REPORT INFORMATION
  Report Type: 
  Country: None (occurrence: None)
  Receive Date: 20111020
  Receipt Date: 20090213
  Transmission Date: 20120403
  Serious: Yes (Hospitalization, Other)
  Sender: FDA-Public Use
  Company Number: 2011030069

PATIENT
  Age: 7 Year
  Sex: Female

DRUGS (4)
  1. IMMUNOGLOBULIN (IMMUNE GLOBULIN INTRAVENOUS (HUMAN) ) [Suspect]
     Indication: EVANS SYNDROME
     Dosage: INTRAVENOUS (NOT OTHERWISE SPECIFIED)
     Route: 042
  2. PREDNISOLONE [Suspect]
  3. RITUXIMAB (RITUXIMAB) [Concomitant]
  4. MYCOPHENOLATE MOFETIL [Suspect]

REACTIONS (15)
  - CARDIAC DISORDER [None]
  - PULMONARY ARTERIAL PRESSURE ABNORMAL [None]
  - HEART RATE INCREASED [None]
  - DECREASED APPETITE [None]
  - PLEURAL EFFUSION [None]
  - HERPES ZOSTER [None]
  - TRICUSPID VALVE INCOMPETENCE [None]
  - PULMONARY OEDEMA [None]
  - RIGHT VENTRICULAR HYPERTROPHY [None]
  - CARDIAC MURMUR [None]
  - PULMONARY HYPERTENSION [None]
  - CARDIOMEGALY [None]
  - FATIGUE [None]
  - RIGHT ATRIAL HYPERTROPHY [None]
  - COUGH [None]
